FAERS Safety Report 18356435 (Version 1)
Quarter: 2020Q4

REPORT INFORMATION
  Report Type: Spontaneous
  Country: IT (occurrence: IT)
  Receive Date: 20201007
  Receipt Date: 20201007
  Transmission Date: 20210114
  Serious: Yes (Hospitalization)
  Sender: FDA-Public Use
  Company Number: IT-ROCHE-2690717

PATIENT
  Age: 52 Year
  Sex: Female

DRUGS (1)
  1. OCREVUS [Suspect]
     Active Substance: OCRELIZUMAB
     Indication: MULTIPLE SCLEROSIS
     Route: 041
     Dates: start: 20180416, end: 20200514

REACTIONS (2)
  - Renal failure [Recovered/Resolved with Sequelae]
  - Hydronephrosis [Recovered/Resolved with Sequelae]

NARRATIVE: CASE EVENT DATE: 20200808
